FAERS Safety Report 7770784-3 (Version None)
Quarter: 2011Q3

REPORT INFORMATION
  Report Type: 
  Country: None (occurrence: None)
  Receive Date: 20110922
  Receipt Date: 20100915
  Transmission Date: 20111222
  Serious: No
  Sender: FDA-Public Use
  Company Number: US-ASTRAZENECA-2009UW08353

PATIENT
  Age: 38 Year
  Sex: Female
  Weight: 148.3 kg

DRUGS (6)
  1. SEROQUEL [Suspect]
     Indication: DEPRESSION
     Route: 048
     Dates: start: 20040301, end: 20070601
  2. ABILIFY [Concomitant]
  3. SEROQUEL [Suspect]
     Indication: BIPOLAR DISORDER
     Route: 048
     Dates: start: 20040301, end: 20070601
  4. ELAVIL [Concomitant]
  5. WELLBUTRIN [Concomitant]
  6. TOPAMAX [Concomitant]

REACTIONS (4)
  - HYPERLIPIDAEMIA [None]
  - TYPE 2 DIABETES MELLITUS [None]
  - BLOOD CHOLESTEROL INCREASED [None]
  - RENAL DISORDER [None]
